FAERS Safety Report 7443309-X (Version None)
Quarter: 2011Q2

REPORT INFORMATION
  Report Type: 
  Country: None (occurrence: None)
  Receive Date: 20110428
  Receipt Date: 20110418
  Transmission Date: 20111010
  Serious: Yes (Death, Life-Threatening, Hospitalization, Other)
  Sender: FDA-Public Use
  Company Number: JP-PFIZER INC-2010117065

PATIENT
  Age: 74 Year
  Sex: Male

DRUGS (3)
  1. RHEUMATREX [Suspect]
     Dosage: 8 MG, WEEKLY
     Route: 048
     Dates: start: 20100101, end: 20100812
  2. AZULFIDINE [Suspect]
     Indication: RHEUMATOID ARTHRITIS
     Dosage: 500 MG, 2X/DAY
     Route: 048
     Dates: start: 20100520, end: 20100812
  3. RHEUMATREX [Suspect]
     Indication: RHEUMATOID ARTHRITIS
     Dosage: 4 MG, WEEKLY
     Dates: start: 20070701, end: 20100101

REACTIONS (5)
  - C-REACTIVE PROTEIN INCREASED [None]
  - OESOPHAGEAL ULCER [None]
  - PLATELET COUNT DECREASED [None]
  - APLASTIC ANAEMIA [None]
  - WHITE BLOOD CELL COUNT DECREASED [None]
